FAERS Safety Report 7733203 (Version 4)
Quarter: 2012Q4

REPORT INFORMATION
  Report Type: 
  Country: US (occurrence: US)
  Receive Date: 20101223
  Receipt Date: 20121127
  Transmission Date: 20130627
  Serious: Yes (Hospitalization)
  Sender: FDA-Public Use
  Company Number: US-BAYER-2010-006395

PATIENT
  Age: 40 Year
  Sex: Female
  Weight: 73.02 kg

DRUGS (11)
  1. YAZ [Suspect]
     Indication: ACNE
     Dates: start: 2008, end: 2009
  2. YAZ [Suspect]
     Indication: CONTRACEPTION
  3. AZITHROMYCIN [Concomitant]
     Indication: UPPER RESPIRATORY TRACT INFECTION
     Dosage: UNK
     Dates: start: 20090820
  4. ALBUTEROL [Concomitant]
     Dosage: UNK UNK, PRN
  5. SYMBICORT [Concomitant]
     Dosage: 160-4.5 mg/act
     Dates: start: 20090720
  6. DIAZEPAM [Concomitant]
     Dosage: 5 mg, 1 tablet three times a day as needed
     Route: 048
     Dates: start: 20090820
  7. VICOPROFEN [Concomitant]
     Dosage: 7.5, 200 mg 1 tablet every 4-6 hours as needed
     Route: 048
     Dates: start: 20090820
  8. ZITHROMAX [Concomitant]
  9. VALIUM [Concomitant]
  10. TRETINOIN [Concomitant]
     Route: 061
  11. NSAID^S [Concomitant]
     Dosage: UNK
     Dates: start: 2009

REACTIONS (5)
  - Pulmonary embolism [None]
  - Deep vein thrombosis [None]
  - Pain [None]
  - Dyspnoea [None]
  - Off label use [None]
